FAERS Safety Report 22309876 (Version 1)
Quarter: 2023Q2

REPORT INFORMATION
  Report Type: Spontaneous
  Country: US (occurrence: US)
  Receive Date: 20230511
  Receipt Date: 20230511
  Transmission Date: 20230721
  Serious: Yes (Other)
  Sender: FDA-Public Use
  Company Number: US-002147023-NVSC2023US107887

PATIENT

DRUGS (3)
  1. TOPOTECAN [Suspect]
     Active Substance: TOPOTECAN HYDROCHLORIDE
     Indication: Ewing^s sarcoma
     Dosage: 0.75 MG/M2, QD (DAY 1-5 OF EVERY CYCLE), 4 CYCLES
     Route: 042
  2. SIMVASTATIN [Suspect]
     Active Substance: SIMVASTATIN
     Indication: Ewing^s sarcoma
     Dosage: 100 MG/M2, BID (DL0) (ON DAYS 1-21 OF EACH 21-DAY CYCLE), 4 CYCLES
     Route: 048
  3. CYCLOPHOSPHAMIDE [Suspect]
     Active Substance: CYCLOPHOSPHAMIDE
     Indication: Ewing^s sarcoma
     Dosage: 250 MG/M2, QD (DAY 1-5 OF EVERY CYCLE), 4 CYCLES
     Route: 042

REACTIONS (3)
  - Haematotoxicity [Unknown]
  - Therapy partial responder [Unknown]
  - Product use in unapproved indication [Unknown]
